FAERS Safety Report 7294038-7 (Version None)
Quarter: 2011Q1

REPORT INFORMATION
  Report Type: 
  Country: None (occurrence: None)
  Receive Date: 20110215
  Receipt Date: 20110207
  Transmission Date: 20110831
  Serious: Yes (Other)
  Sender: FDA-Public Use
  Company Number: US-ROCHE-697987

PATIENT
  Sex: Male
  Weight: 106.6 kg

DRUGS (14)
  1. ACCUTANE [Suspect]
     Route: 048
     Dates: start: 20050606, end: 20050731
  2. CLOTRIMAZOLE [Concomitant]
  3. AMNESTEEM [Suspect]
     Indication: ACNE
     Route: 065
     Dates: start: 20050425, end: 20050731
  4. COLAZAL [Concomitant]
  5. AMBIEN [Concomitant]
  6. TRIDESILON [Concomitant]
  7. ACCUTANE [Suspect]
     Indication: ACNE
     Route: 048
     Dates: start: 20050425, end: 20050606
  8. REMICADE [Concomitant]
  9. RETIN-A [Concomitant]
  10. PREDNISONE TAB [Concomitant]
  11. IMODIUM [Concomitant]
  12. AZA [Concomitant]
  13. NORTRIPTYLINE [Concomitant]
  14. TETRACYCLINE [Concomitant]
     Route: 048

REACTIONS (10)
  - NAUSEA [None]
  - INTESTINAL OBSTRUCTION [None]
  - FOLLICULITIS [None]
  - ACNE [None]
  - INFLAMMATORY BOWEL DISEASE [None]
  - ARTHRALGIA [None]
  - INTESTINAL HAEMORRHAGE [None]
  - COLITIS ULCERATIVE [None]
  - DEPRESSION [None]
  - ANAEMIA [None]
